FAERS Safety Report 10103631 (Version 5)
Quarter: 2014Q3

REPORT INFORMATION
  Report Type: Spontaneous
  Country: IT (occurrence: IT)
  Receive Date: 20140424
  Receipt Date: 20140729
  Transmission Date: 20150326
  Serious: Yes (Hospitalization)
  Sender: FDA-Public Use
  Company Number: IT-PFIZER INC-2014112074

PATIENT
  Age: 16 Year
  Sex: Female

DRUGS (2)
  1. ALPRAZOLAM. [Suspect]
     Active Substance: ALPRAZOLAM
     Dosage: 15 DF, DAILY
     Route: 048
     Dates: start: 20130708, end: 20130708
  2. SERTRALINE HCL [Suspect]
     Active Substance: SERTRALINE HYDROCHLORIDE
     Dosage: 30 DF, DAILY
     Route: 048
     Dates: start: 20130708, end: 20130708

REACTIONS (4)
  - Tachycardia [Unknown]
  - Drug abuse [Unknown]
  - Bradyphrenia [Unknown]
  - Vomiting [Unknown]

NARRATIVE: CASE EVENT DATE: 20130708
